FAERS Safety Report 5096008-6 (Version None)
Quarter: 2006Q3

REPORT INFORMATION
  Report Type: 
  Country: None (occurrence: None)
  Receive Date: 20060905
  Receipt Date: 20060825
  Transmission Date: 20061208
  Serious: Yes (Hospitalization)
  Sender: FDA-Public Use
  Company Number: JP-JPN-A200603354

PATIENT
  Age: 80 Year
  Sex: Female
  Weight: 52 kg

DRUGS (5)
  1. VALTREX [Suspect]
     Indication: HERPES ZOSTER
     Dosage: 1000MG TWICE PER DAY
     Route: 048
     Dates: start: 20060814, end: 20060819
  2. LOXONIN [Concomitant]
     Route: 065
  3. AM [Concomitant]
     Route: 048
  4. CEFZON [Concomitant]
     Route: 048
  5. CALBLOCK [Concomitant]
     Route: 048

REACTIONS (4)
  - ENCEPHALOPATHY [None]
  - NAUSEA [None]
  - RENAL IMPAIRMENT [None]
  - YAWNING [None]
